FAERS Safety Report 8221169 (Version 4)
Quarter: 2014Q1

REPORT INFORMATION
  Report Type: Spontaneous
  Country: JP (occurrence: JP)
  Receive Date: 20111102
  Receipt Date: 20140127
  Transmission Date: 20141002
  Serious: Yes (Hospitalization)
  Sender: FDA-Public Use
  Company Number: JP-SANOFI-AVENTIS-2011SA069818

PATIENT
  Age: 45 Year
  Sex: Female
  Weight: 35.5 kg

DRUGS (19)
  1. LASIX [Suspect]
     Indication: OEDEMA PERIPHERAL
     Route: 048
     Dates: end: 2011
  2. LASIX [Suspect]
     Indication: RENAL FAILURE
     Route: 048
     Dates: end: 2011
  3. ALFACALCIDOL [Suspect]
     Indication: OSTEOPOROSIS
     Route: 048
  4. CALCIUM CARBONATE [Suspect]
     Indication: ABDOMINAL PAIN UPPER
     Route: 048
  5. CALCIUM PHOSPHATE [Suspect]
     Indication: PRODUCT USED FOR UNKNOWN INDICATION
     Route: 065
  6. MAGNESIUM OXIDE [Suspect]
     Indication: ABDOMINAL PAIN UPPER
     Route: 048
  7. SODIUM BICARBONATE [Suspect]
     Indication: ABDOMINAL PAIN UPPER
     Route: 048
  8. CABAGIN [Suspect]
     Indication: GASTRITIS
     Dosage: DOSE: 2T
     Route: 048
  9. ALDACTONE [Concomitant]
     Indication: OEDEMA
     Route: 048
  10. ASPARA K [Concomitant]
     Indication: HYPOKALAEMIA
     Route: 048
     Dates: end: 20110415
  11. NEOPHAGEN [Concomitant]
     Indication: HEPATIC FUNCTION ABNORMAL
     Dosage: DOSE: 1T
     Route: 048
     Dates: end: 20110415
  12. ZYLORIC [Concomitant]
     Indication: HYPERURICAEMIA
     Route: 048
     Dates: end: 20130415
  13. CRESTOR [Concomitant]
     Indication: HYPERLIPIDAEMIA
     Route: 048
     Dates: end: 20130415
  14. PERSANTIN [Concomitant]
     Route: 048
     Dates: end: 20110415
  15. KREMEZIN [Concomitant]
     Indication: RENAL FAILURE CHRONIC
     Route: 048
     Dates: end: 20110415
  16. LEXOTAN [Concomitant]
     Indication: DEPRESSION
     Route: 048
  17. LUVOX [Concomitant]
     Indication: DEPRESSION
     Dates: end: 20110415
  18. ASPARTATE POTASSIUM [Concomitant]
  19. ANTIDEPRESSANTS [Concomitant]

REACTIONS (25)
  - Pseudo-Bartter syndrome [Recovering/Resolving]
  - Drug abuse [Unknown]
  - Metabolic alkalosis [Recovering/Resolving]
  - Hypokalaemia [Unknown]
  - Blood pH increased [Recovering/Resolving]
  - Blood bicarbonate increased [Recovering/Resolving]
  - Base excess increased [Unknown]
  - Renal failure chronic [Recovering/Resolving]
  - Blood creatinine increased [Recovering/Resolving]
  - Haemoglobin decreased [Recovering/Resolving]
  - Blood urea increased [Recovering/Resolving]
  - Blood sodium decreased [Recovering/Resolving]
  - C-reactive protein increased [Recovering/Resolving]
  - Angiotensin converting enzyme increased [Recovering/Resolving]
  - Urine chloride increased [Recovering/Resolving]
  - Milk-alkali syndrome [Recovering/Resolving]
  - Hypercalcaemia [Recovering/Resolving]
  - Hyperphosphataemia [Recovering/Resolving]
  - Vitamin D decreased [Unknown]
  - Calcification metastatic [Unknown]
  - Corneal deposits [Unknown]
  - Pulmonary calcification [Recovering/Resolving]
  - Cough [Recovered/Resolved]
  - Dyspnoea [Not Recovered/Not Resolved]
  - Hyperparathyroidism [Recovering/Resolving]
